FAERS Safety Report 16709015 (Version 1)
Quarter: 2019Q3

REPORT INFORMATION
  Report Type: Spontaneous
  Country: FR (occurrence: FR)
  Receive Date: 20190816
  Receipt Date: 20190816
  Transmission Date: 20191004
  Serious: Yes (Hospitalization)
  Sender: FDA-Public Use
  Company Number: FR-TEVA-2019-FR-1092612

PATIENT
  Age: 65 Year
  Sex: Male
  Weight: 80 kg

DRUGS (13)
  1. COTRIMOXAZOLE [Suspect]
     Active Substance: SULFAMETHOXAZOLE\TRIMETHOPRIM
     Indication: PROSTATITIS
     Dosage: 1 DOSAGE FORM, 1 DAY, 800 MG / 160 MG
     Route: 048
     Dates: start: 20190625, end: 20190709
  2. PANTOPRAZOLE MYLAN 40 MG, COMPRIM? GASTRO-R?SISTANT [Concomitant]
     Active Substance: PANTOPRAZOLE SODIUM
     Dosage: 40 MILLIGRAM, 1 DAY
     Route: 048
  3. EUCREAS 50 MG/1000 MG, COMPRIM? PELLICUL? [Concomitant]
     Active Substance: METFORMIN HYDROCHLORIDE\VILDAGLIPTIN
     Indication: TYPE 2 DIABETES MELLITUS
     Dosage: 50 MG/1000 MG, 1 DOSAGE FORM, 1DAY
     Route: 048
     Dates: start: 201906, end: 20190709
  4. ATENOLOL MYLAN 50 MG, COMPRIM? PELLICUL? S?CABLE [Concomitant]
     Dosage: 50 MILLIGRAM, 1 DAY
     Route: 048
     Dates: end: 20190709
  5. PREGABALINE MYLAN 150 MG, G?LULE [Concomitant]
     Dosage: 450 MILLIGRAM, 1DAY
     Route: 048
     Dates: end: 20190709
  6. LOXEN L P 50 MG, G?LULE ? LIB?RATION PROLONG?E [Concomitant]
     Active Substance: NICARDIPINE HYDROCHLORIDE
     Route: 048
     Dates: start: 20190527
  7. ENALAPRIL MYLAN 20 MG, COMPRIM? S?CABLE [Suspect]
     Active Substance: ENALAPRIL
     Indication: HYPERTENSION
     Dosage: 20 MILLIGRAM, 1 DAY
     Route: 048
     Dates: start: 201906, end: 20190709
  8. KARDEGIC [Concomitant]
     Active Substance: ASPIRIN DL-LYSINE
     Dosage: 75 MILLIGRAM, 1 DAY
     Route: 048
     Dates: end: 20190709
  9. GLICLAZIDE MYLAN 30 MG, COMPRIM? ? LIB?RATION MODIFI?E [Concomitant]
     Dosage: 30 MILLIGRAM, 1 DAY
     Route: 048
     Dates: end: 20190709
  10. ALFUZOSINE MYLAN LP 10 MG, COMPRIM? ? LIB?RATION PROLONG?E [Concomitant]
     Dosage: 10 MILLIGRAM, 1DAY
     Route: 048
     Dates: end: 20190709
  11. RIFADINE 300 MG, G?LULE [Concomitant]
     Active Substance: RIFAMPIN
     Indication: INTERVERTEBRAL DISCITIS
     Dosage: 900 MILLIGRAM, 1 DAY
     Route: 048
     Dates: start: 20190515, end: 20190709
  12. ESIDREX [Suspect]
     Active Substance: HYDROCHLOROTHIAZIDE
     Indication: HYPERTENSION
     Dosage: 25 MILLIGRAM, 1 DAY
     Route: 048
     Dates: start: 201906, end: 20190709
  13. ZYVOXID 600 MG, COMPRIM? PELLICUL? [Concomitant]
     Active Substance: LINEZOLID
     Indication: INTERVERTEBRAL DISCITIS
     Dosage: 1200 MILLIGRAM, 1 DAY
     Route: 048
     Dates: start: 20190527, end: 20190709

REACTIONS (2)
  - Acute kidney injury [Recovering/Resolving]
  - Hyperkalaemia [Recovered/Resolved]

NARRATIVE: CASE EVENT DATE: 20190709
